FAERS Safety Report 23812421 (Version 1)
Quarter: 2024Q2

REPORT INFORMATION
  Report Type: Spontaneous
  Country: BE (occurrence: None)
  Receive Date: 20240503
  Receipt Date: 20240503
  Transmission Date: 20240716
  Serious: Yes (Hospitalization, Disabling, Other)
  Sender: FDA-Public Use
  Company Number: 2024A102701

PATIENT
  Age: 32 Year
  Sex: Female

DRUGS (2)
  1. DAPAGLIFLOZIN [Suspect]
     Active Substance: DAPAGLIFLOZIN
     Indication: Type 1 diabetes mellitus
     Route: 048
     Dates: start: 2021
  2. FIASP [Concomitant]
     Active Substance: INSULIN ASPART
     Dosage: 2 INJECTIONS PER DAY

REACTIONS (2)
  - Food poisoning [Unknown]
  - Ketoacidosis [Recovered/Resolved]
